FAERS Safety Report 7406552-1 (Version None)
Quarter: 2011Q2

REPORT INFORMATION
  Report Type: 
  Country: None (occurrence: None)
  Receive Date: 20110411
  Receipt Date: 20110401
  Transmission Date: 20111010
  Serious: Yes (Hospitalization)
  Sender: FDA-Public Use
  Company Number: US-ASTRAZENECA-2011SE18672

PATIENT
  Age: 76 Year
  Sex: Female
  Weight: 56.7 kg

DRUGS (7)
  1. VITAMINS [Concomitant]
  2. PREDNISONE [Concomitant]
  3. VYTORIN [Concomitant]
  4. SYMBICORT [Suspect]
     Indication: PULMONARY FIBROSIS
     Dosage: 80/4.5, 2 PUFFS BID
     Route: 055
  5. ACCUPRIL [Concomitant]
  6. NORVASC [Concomitant]
  7. ESTRACE [Concomitant]

REACTIONS (2)
  - PNEUMONIA [None]
  - OFF LABEL USE [None]
